FAERS Safety Report 8509739-X (Version None)
Quarter: 2012Q3

REPORT INFORMATION
  Report Type: 
  Country: None (occurrence: None)
  Receive Date: 20120703
  Receipt Date: 20120620
  Transmission Date: 20120928
  Serious: Yes (Hospitalization)
  Sender: FDA-Public Use
  Company Number: JPI-P-022097

PATIENT
  Age: 46 Year
  Sex: Female
  Weight: 65.7716 kg

DRUGS (7)
  1. RABEPRAZOLE SODIUM [Concomitant]
  2. VITAMIN D [Concomitant]
  3. XYREM [Suspect]
     Indication: CATAPLEXY
     Dosage: ,ORAL, 9 GM (4.5 GM,2 IN 1 D),ORA1, 4.5 GM (2.25 GM,2 IN 1 D),ORAL
     Route: 048
     Dates: start: 20080513, end: 20080101
  4. XYREM [Suspect]
     Indication: CATAPLEXY
     Dosage: ,ORAL, 9 GM (4.5 GM,2 IN 1 D),ORA1, 4.5 GM (2.25 GM,2 IN 1 D),ORAL
     Route: 048
     Dates: start: 20080603
  5. XYREM [Suspect]
     Indication: CATAPLEXY
     Dosage: ,ORAL, 9 GM (4.5 GM,2 IN 1 D),ORA1, 4.5 GM (2.25 GM,2 IN 1 D),ORAL
     Route: 048
     Dates: start: 20120112, end: 20120101
  6. RITALIN [Concomitant]
  7. HYDROMORPHONE HCL [Concomitant]

REACTIONS (13)
  - HAEMATEMESIS [None]
  - ASTHENIA [None]
  - FALL [None]
  - BITE [None]
  - POOR QUALITY SLEEP [None]
  - HYPERTENSION [None]
  - CONDITION AGGRAVATED [None]
  - ANAPHYLACTIC SHOCK [None]
  - PAIN IN EXTREMITY [None]
  - ARTHRALGIA [None]
  - ABSCESS ORAL [None]
  - BACK PAIN [None]
  - JOINT SWELLING [None]
